FAERS Safety Report 8431891-5 (Version None)
Quarter: 2012Q2

REPORT INFORMATION
  Report Type: 
  Country: None (occurrence: None)
  Receive Date: 20120613
  Receipt Date: 20120530
  Transmission Date: 20120825
  Serious: Yes (Death, Hospitalization)
  Sender: FDA-Public Use
  Company Number: SE-CELGENEUS-150-20785-11032316

PATIENT
  Sex: Male
  Weight: 78 kg

DRUGS (4)
  1. THALIDOMIDE [Suspect]
     Indication: MULTIPLE MYELOMA
     Dosage: 1750 MILLIGRAM
     Route: 048
     Dates: start: 20110211, end: 20110215
  2. MELPHALAN HYDROCHLORIDE [Suspect]
     Indication: MULTIPLE MYELOMA
     Dosage: 56 MILLIGRAM
     Route: 048
     Dates: start: 20110211, end: 20110214
  3. AC SALICYCLIC ACID [Concomitant]
     Dosage: 75 MILLIGRAM
     Route: 048
     Dates: start: 20110211, end: 20110314
  4. PREDNISONE TAB [Suspect]
     Indication: MULTIPLE MYELOMA
     Dosage: 600 MILLIGRAM
     Route: 048
     Dates: start: 20110211, end: 20110214

REACTIONS (2)
  - MULTIPLE MYELOMA [None]
  - CEREBRAL ISCHAEMIA [None]
